FAERS Safety Report 25097227 (Version 4)
Quarter: 2025Q3

REPORT INFORMATION
  Report Type: Report from Study
  Country: US (occurrence: US)
  Receive Date: 20250319
  Receipt Date: 20250717
  Transmission Date: 20251021
  Serious: Yes (Other)
  Sender: ABBVIE
  Company Number: US-ABBVIE-6183292

PATIENT
  Age: 64 Year
  Sex: Male

DRUGS (2)
  1. SKYRIZI [Suspect]
     Active Substance: RISANKIZUMAB-RZAA
     Indication: Psoriasis
     Dosage: UNKNOWN
     Route: 058
     Dates: start: 20241015
  2. CEFDINIR [Suspect]
     Active Substance: CEFDINIR
     Indication: Postoperative care
     Route: 065
     Dates: start: 2025, end: 2025

REACTIONS (12)
  - Nasal septum deviation [Recovered/Resolved]
  - Abdominal pain upper [Unknown]
  - Psoriasis [Recovered/Resolved]
  - Post procedural haemorrhage [Not Recovered/Not Resolved]
  - Headache [Unknown]
  - Feeling abnormal [Unknown]
  - Tooth fracture [Unknown]
  - Dyspepsia [Unknown]
  - Post procedural swelling [Not Recovered/Not Resolved]
  - Headache [Recovered/Resolved]
  - Nasal congestion [Not Recovered/Not Resolved]
  - Osteomyelitis [Recovered/Resolved]

NARRATIVE: CASE EVENT DATE: 20241001
